FAERS Safety Report 18229053 (Version 1)
Quarter: 2020Q3

REPORT INFORMATION
  Report Type: Spontaneous
  Country: US (occurrence: US)
  Receive Date: 20200903
  Receipt Date: 20200903
  Transmission Date: 20201103
  Serious: No
  Sender: FDA-Public Use
  Company Number: US-TEVA-2020-US-1822564

PATIENT
  Age: 17 Year
  Sex: Male

DRUGS (1)
  1. NORTRIPTYLINE TEVA [Suspect]
     Active Substance: NORTRIPTYLINE
     Indication: TINNITUS
     Route: 065
     Dates: start: 202008

REACTIONS (2)
  - Product use in unapproved indication [Unknown]
  - Rash [Unknown]

NARRATIVE: CASE EVENT DATE: 202008
